FAERS Safety Report 8500590-3 (Version None)
Quarter: 2012Q3

REPORT INFORMATION
  Report Type: 
  Country: None (occurrence: None)
  Receive Date: 20120703
  Receipt Date: 20120703
  Transmission Date: 20120928
  Serious: Yes (Other)
  Sender: FDA-Public Use
  Company Number: None

PATIENT
  Sex: Female

DRUGS (1)
  1. TEV-TROPIN [Suspect]
     Indication: DWARFISM
     Dosage: 2MG DAILY SQ
     Route: 058
     Dates: start: 20120418, end: 20120618

REACTIONS (1)
  - ABDOMINAL PAIN UPPER [None]
